FAERS Safety Report 11948856 (Version 2)
Quarter: 2016Q1

REPORT INFORMATION
  Report Type: Report from Study
  Country: KR (occurrence: KR)
  Receive Date: 20160125
  Receipt Date: 20160126
  Transmission Date: 20160526
  Serious: Yes (Hospitalization, Other)
  Sender: FDA-Public Use
  Company Number: KR-OTSUKA-JP-2012-15651

PATIENT
  Age: 64 Year
  Sex: Female

DRUGS (5)
  1. EVENING PRIMROSE OIL [Concomitant]
     Active Substance: EVENING PRIMROSE OIL
     Indication: DIABETES MELLITUS
     Dosage: 120 MG, UNK
     Route: 048
     Dates: start: 20071113, end: 20110328
  2. CILOSTAZOL. [Suspect]
     Active Substance: CILOSTAZOL
     Indication: DIABETIC COMPLICATION
     Dosage: 100 MG, BID
     Route: 048
     Dates: start: 20090714
  3. CILOSTAZOL. [Suspect]
     Active Substance: CILOSTAZOL
     Indication: ARTERIOSCLEROSIS
  4. IRBESARTAN. [Concomitant]
     Active Substance: IRBESARTAN
     Indication: HYPERTENSION
     Dosage: 150 MG, UNK
     Route: 048
     Dates: start: 20031021
  5. METFORMIN [Concomitant]
     Active Substance: METFORMIN HYDROCHLORIDE
     Indication: DIABETES MELLITUS
     Dosage: 2550 MG, UNK
     Route: 048
     Dates: start: 20091013, end: 20110328

REACTIONS (2)
  - Chest discomfort [Unknown]
  - Myocardial infarction [Recovered/Resolved with Sequelae]

NARRATIVE: CASE EVENT DATE: 20101116
